FAERS Safety Report 20188814 (Version 1)
Quarter: 2021Q4

REPORT INFORMATION
  Report Type: Spontaneous
  Country: FR (occurrence: FR)
  Receive Date: 20211215
  Receipt Date: 20211215
  Transmission Date: 20220303
  Serious: Yes (Other)
  Sender: FDA-Public Use
  Company Number: None

PATIENT
  Age: 43 Year
  Sex: Male

DRUGS (2)
  1. METHYLPHENIDATE [Suspect]
     Active Substance: METHYLPHENIDATE
     Indication: Product used for unknown indication
     Dosage: CONSOMMATION QUOTIDIENNE DEPUIS QUELQUES SEMAINES
     Route: 048
  2. COCAINE [Suspect]
     Active Substance: COCAINE
     Indication: Product used for unknown indication
     Dosage: 5 GRAM, QW, DEPUIS 20-25 ANS
     Route: 055

REACTIONS (2)
  - Drug dependence [Not Recovered/Not Resolved]
  - Product use in unapproved indication [Not Recovered/Not Resolved]
